APPROVED DRUG PRODUCT: THALITONE
Active Ingredient: CHLORTHALIDONE
Strength: 25MG
Dosage Form/Route: TABLET;ORAL
Application: N019574 | Product #002 | TE Code: BX
Applicant: CASPER PHARMA LLC
Approved: Feb 12, 1992 | RLD: Yes | RS: Yes | Type: RX